FAERS Safety Report 7099517-3 (Version None)
Quarter: 2010Q4

REPORT INFORMATION
  Report Type: 
  Country: None (occurrence: None)
  Receive Date: 20101112
  Receipt Date: 20101103
  Transmission Date: 20110411
  Serious: Yes (Hospitalization)
  Sender: FDA-Public Use
  Company Number: US-ROCHE-729932

PATIENT
  Sex: Male

DRUGS (10)
  1. AVASTIN [Suspect]
     Indication: COLON CANCER
     Route: 042
     Dates: start: 20100420
  2. AVASTIN [Suspect]
     Dosage: FREQUENCY:ONCE
     Route: 042
     Dates: start: 20100629
  3. AVASTIN [Suspect]
     Dosage: DOSE HELD.
     Route: 042
     Dates: start: 20100914
  4. ERBITUX [Suspect]
     Route: 065
     Dates: start: 20100629
  5. LEUCOVORIN CALCIUM [Concomitant]
  6. FLUOROURACIL [Concomitant]
  7. LISINOPRIL [Concomitant]
  8. IRINOTECAN HCL [Concomitant]
  9. METFORMIN [Concomitant]
  10. CLINDAMYCIN [Concomitant]

REACTIONS (2)
  - SMALL INTESTINAL OBSTRUCTION [None]
  - VOMITING [None]
